FAERS Safety Report 13629366 (Version 5)
Quarter: 2017Q3

REPORT INFORMATION
  Report Type: Spontaneous
  Country: GB (occurrence: GB)
  Receive Date: 20170608
  Receipt Date: 20170915
  Transmission Date: 20171127
  Serious: Yes (Disabling, Other)
  Sender: FDA-Public Use
  Company Number: GB-TEVA-776025ACC

PATIENT
  Sex: Male

DRUGS (3)
  1. TRAMADOL. [Suspect]
     Active Substance: TRAMADOL
     Indication: ANALGESIC THERAPY
     Dosage: 100 MILLIGRAM DAILY; DOSE: (50MG-100MG), 50MG IN MORNING AND 50MG AT NIGHT
     Route: 048
     Dates: start: 20160909, end: 20160916
  2. LAMICTAL [Concomitant]
     Active Substance: LAMOTRIGINE
     Indication: AUTISM SPECTRUM DISORDER
     Dosage: 200 MILLIGRAM DAILY;
     Dates: start: 201609
  3. TRAMADOL. [Suspect]
     Active Substance: TRAMADOL
     Indication: WOUND

REACTIONS (9)
  - Insomnia [Unknown]
  - Autism spectrum disorder [Recovering/Resolving]
  - Epilepsy [Recovering/Resolving]
  - Constipation [Unknown]
  - Delusion [Recovering/Resolving]
  - Depression [Not Recovered/Not Resolved]
  - Hallucination [Not Recovered/Not Resolved]
  - Agitation [Recovering/Resolving]
  - Fear [Recovering/Resolving]

NARRATIVE: CASE EVENT DATE: 201609
